FAERS Safety Report 8558289-3 (Version None)
Quarter: 2012Q3

REPORT INFORMATION
  Report Type: 
  Country: None (occurrence: None)
  Receive Date: 20120801
  Receipt Date: 20120724
  Transmission Date: 20120928
  Serious: Yes (Hospitalization)
  Sender: FDA-Public Use
  Company Number: US-ELI_LILLY_AND_COMPANY-US201207007687

PATIENT
  Sex: Female

DRUGS (9)
  1. HUMALOG [Concomitant]
     Indication: DIABETES MELLITUS
     Dosage: UNK, UNKNOWN
  2. CALCIUM [Concomitant]
     Dosage: UNK
  3. ACTONEL [Concomitant]
     Dosage: UNK
     Dates: start: 20010101
  4. FORTEO [Suspect]
     Indication: OSTEOPOROSIS
     Dosage: 20 UG, QD
  5. CARDURA [Concomitant]
     Dosage: 6 MG, UNK
  6. THYROID TAB [Concomitant]
     Dosage: UNK
  7. VITAMIN D [Concomitant]
     Dosage: 2000 U, QD
  8. HUMULIN N [Concomitant]
     Indication: DIABETES MELLITUS
     Dosage: UNK, UNKNOWN
  9. TOPROL-XL [Concomitant]
     Dosage: 50 MG, UNK

REACTIONS (6)
  - PAIN [None]
  - BLOOD SODIUM DECREASED [None]
  - SPINAL FRACTURE [None]
  - RENAL DISORDER [None]
  - EATING DISORDER [None]
  - BLOOD POTASSIUM INCREASED [None]
